FAERS Safety Report 9110099 (Version 2)
Quarter: 2013Q2

REPORT INFORMATION
  Report Type: Report from Study
  Country: US (occurrence: US)
  Receive Date: 20130222
  Receipt Date: 20130418
  Transmission Date: 20140414
  Serious: Yes (Hospitalization, Other)
  Sender: FDA-Public Use
  Company Number: US-ABBOTT-13P-163-1044666-00

PATIENT
  Age: 60 Year
  Sex: Female
  Weight: 90.35 kg

DRUGS (3)
  1. HUMIRA [Suspect]
     Indication: CROHN^S DISEASE
     Route: 058
     Dates: start: 200711
  2. HUMIRA [Suspect]
     Route: 058
     Dates: start: 20080218, end: 20120820
  3. HUMIRA [Suspect]
     Route: 058
     Dates: start: 20120917

REACTIONS (1)
  - Renal cell carcinoma [Recovered/Resolved]
